FAERS Safety Report 11339685 (Version 2)
Quarter: 2015Q4

REPORT INFORMATION
  Report Type: Spontaneous
  Country: FR (occurrence: FR)
  Receive Date: 20150805
  Receipt Date: 20151106
  Transmission Date: 20160304
  Serious: Yes (Hospitalization, Other)
  Sender: FDA-Public Use
  Company Number: FR-009507513-1507FRA013447

PATIENT
  Age: 82 Year
  Sex: Female

DRUGS (30)
  1. COUMADIN [Suspect]
     Active Substance: WARFARIN SODIUM
     Dosage: 1MG EVERY OTHER DAY
  2. UMULINE [Suspect]
     Active Substance: INSULIN HUMAN
     Dosage: DOSE: REGARDING GLYCEMIA
     Route: 058
  3. CIPROFLOXACIN. [Suspect]
     Active Substance: CIPROFLOXACIN
     Dosage: UNK
     Route: 042
     Dates: start: 20150316, end: 201503
  4. ECONAZOLE [Suspect]
     Active Substance: ECONAZOLE
     Dosage: UNK
     Dates: start: 20150709, end: 201507
  5. DIFFU-K [Suspect]
     Active Substance: POTASSIUM CHLORIDE
     Dosage: 6 DF, QD
     Route: 048
  6. FLAGYL [Suspect]
     Active Substance: METRONIDAZOLE\METRONIDAZOLE HYDROCHLORIDE
     Dosage: UNK
     Dates: start: 201503, end: 201503
  7. RIFAMPIN. [Suspect]
     Active Substance: RIFAMPIN
  8. COLCHICINE. [Suspect]
     Active Substance: COLCHICINE
     Dosage: UNK
     Dates: start: 201503, end: 201503
  9. DISCOTRINE [Suspect]
     Active Substance: NITROGLYCERIN
     Dosage: TRANSDERMAL DEVICE, 5 MG/24 HOURS
     Route: 003
  10. LOXEN [Suspect]
     Active Substance: NICARDIPINE HYDROCHLORIDE
     Dosage: 1 DF, ON DEMAND
     Route: 048
  11. ACETAMINOPHEN. [Suspect]
     Active Substance: ACETAMINOPHEN
     Dosage: TID
     Route: 048
  12. MOVICOL [Suspect]
     Active Substance: POLYETHYLENE GLYCOL 3350\POTASSIUM CHLORIDE\SODIUM BICARBONATE\SODIUM CHLORIDE
     Dosage: 2 DF, ON DEMAND
     Route: 048
  13. DIPROSONE [Suspect]
     Active Substance: BETAMETHASONE DIPROPIONATE
     Dosage: 2 APPLICATION, QD
     Route: 003
     Dates: start: 20150416, end: 201507
  14. DEXERYL CREAM [Suspect]
     Active Substance: GLYCERIN\PARAFFIN
     Dosage: TOTAL DAILY DOSE: 1 APPLICATION
     Route: 003
     Dates: start: 20150416, end: 201507
  15. ZOPICLONE [Suspect]
     Active Substance: ZOPICLONE
     Dosage: 0.5 DF, UNK
     Route: 048
  16. CETIRIZINE HYDROCHLORIDE. [Suspect]
     Active Substance: CETIRIZINE HYDROCHLORIDE
     Dosage: 10 MG, QD
     Route: 048
  17. ROCEPHIN [Suspect]
     Active Substance: CEFTRIAXONE SODIUM
     Dosage: UNK
     Route: 042
     Dates: start: 201503, end: 201503
  18. TIENAM IV 250MG/250MG, POUDRE POUR PERFUSION [Suspect]
     Active Substance: CILASTATIN SODIUM\IMIPENEM
     Dosage: UNK
     Route: 042
     Dates: start: 20150316, end: 201503
  19. AMLOR [Suspect]
     Active Substance: AMLODIPINE BESYLATE
     Dosage: 20 MG, QD
     Route: 048
  20. BRICANYL [Suspect]
     Active Substance: TERBUTALINE SULFATE
     Dosage: UNK, TID
     Route: 055
  21. AUGMENTIN [Suspect]
     Active Substance: AMOXICILLIN\CLAVULANATE POTASSIUM
     Dosage: UNK
     Dates: start: 20150310, end: 20150310
  22. MATRIFEN [Suspect]
     Active Substance: FENTANYL
     Dosage: UNK
     Route: 003
     Dates: start: 201503, end: 201503
  23. BACTRIM [Suspect]
     Active Substance: SULFAMETHOXAZOLE\TRIMETHOPRIM
     Dosage: UNK
     Route: 042
     Dates: start: 201503, end: 201503
  24. LASILIX [Suspect]
     Active Substance: FUROSEMIDE
     Dosage: 120 MG, QD
     Route: 048
  25. ATROVENT [Suspect]
     Active Substance: IPRATROPIUM BROMIDE
     Dosage: UNK, TID
     Route: 055
  26. LANTUS [Suspect]
     Active Substance: INSULIN GLARGINE
     Dosage: 10 IU, QD
     Route: 058
  27. CORDARONE [Suspect]
     Active Substance: AMIODARONE HYDROCHLORIDE
     Dosage: UNK
     Route: 048
     Dates: start: 20150310, end: 20150316
  28. HYPERIUM [Suspect]
     Active Substance: RILMENIDINE PHOSPHATE
     Dosage: 2 MG, QD,
     Route: 048
     Dates: start: 20150316
  29. CEFOXITIN [Suspect]
     Active Substance: CEFOXITIN SODIUM
     Dosage: UNK
     Route: 042
     Dates: start: 201503, end: 20150328
  30. FOSFOMYCIN [Suspect]
     Active Substance: FOSFOMYCIN
     Dosage: UNK
     Route: 042
     Dates: start: 201503, end: 201503

REACTIONS (1)
  - Drug reaction with eosinophilia and systemic symptoms [Recovered/Resolved]

NARRATIVE: CASE EVENT DATE: 20150709
